FAERS Safety Report 5851209-1 (Version None)
Quarter: 2008Q3

REPORT INFORMATION
  Report Type: 
  Country: None (occurrence: None)
  Receive Date: 20080820
  Receipt Date: 20080814
  Transmission Date: 20090109
  Serious: Yes (Hospitalization)
  Sender: FDA-Public Use
  Company Number: US-ASTRAZENECA-2008UW16186

PATIENT
  Age: 52 Year
  Sex: Female
  Weight: 149.7 kg

DRUGS (8)
  1. SEROQUEL [Suspect]
     Indication: BIPOLAR DISORDER
     Route: 048
     Dates: start: 20030101
  2. SEROQUEL [Suspect]
     Indication: INSOMNIA
     Route: 048
     Dates: start: 20030101
  3. COUMADIN [Concomitant]
  4. HYDROCHLOROTHIAZIDE [Concomitant]
  5. LISINOPRIL [Concomitant]
  6. SYNTHROID [Concomitant]
  7. LOVASTATIN [Concomitant]
  8. EFFEXOR [Concomitant]

REACTIONS (2)
  - ANTIPHOSPHOLIPID ANTIBODIES [None]
  - THROMBOSIS [None]
